FAERS Safety Report 4865730-6 (Version None)
Quarter: 2005Q4

REPORT INFORMATION
  Report Type: 
  Country: None (occurrence: None)
  Receive Date: 20051223
  Receipt Date: 20051004
  Transmission Date: 20060501
  Serious: Yes (Life-Threatening, Hospitalization, Other)
  Sender: FDA-Public Use
  Company Number: PHRM2005FR02637

PATIENT
  Age: 11 Year
  Sex: Male
  Weight: 50 kg

DRUGS (9)
  1. GLEEVEC [Suspect]
     Indication: ACUTE LYMPHOCYTIC LEUKAEMIA
     Dosage: 400 MG DAILY
     Route: 048
     Dates: start: 20050928, end: 20051002
  2. AMIKLIN [Suspect]
     Dosage: 750 MG, QD
     Dates: start: 20050928, end: 20051019
  3. BACTRIM [Suspect]
     Dosage: 800 MG, QW3
  4. FORTUM /NET/ [Suspect]
     Dosage: 2.5 G, TID
     Dates: start: 20050928, end: 20051019
  5. VINCRISTINE [Concomitant]
  6. DAUNORUBICINE [Concomitant]
  7. ENDOXAN [Concomitant]
  8. PREDNISOLONE [Concomitant]
  9. TARGOCID [Suspect]
     Dosage: 400 MG, QD
     Dates: start: 20050928, end: 20051019

REACTIONS (24)
  - ACUTE PULMONARY OEDEMA [None]
  - ANAEMIA [None]
  - BLOOD ALKALINE PHOSPHATASE DECREASED [None]
  - BLOOD CALCIUM DECREASED [None]
  - BLOOD POTASSIUM DECREASED [None]
  - BLOOD SODIUM DECREASED [None]
  - C-REACTIVE PROTEIN INCREASED [None]
  - CARDIOMEGALY [None]
  - FOAMING AT MOUTH [None]
  - HAEMOGLOBIN DECREASED [None]
  - HEPATOMEGALY [None]
  - INTERSTITIAL LUNG DISEASE [None]
  - MYALGIA [None]
  - PAIN [None]
  - PARAPLEGIA [None]
  - PLATELET COUNT DECREASED [None]
  - PLEURAL EFFUSION [None]
  - PROTEIN TOTAL DECREASED [None]
  - RALES [None]
  - RED BLOOD CELL COUNT DECREASED [None]
  - RESPIRATORY DISTRESS [None]
  - SCIATICA [None]
  - THROMBOCYTOPENIA [None]
  - WHITE BLOOD CELL COUNT DECREASED [None]
